FAERS Safety Report 25337138 (Version 1)
Quarter: 2025Q2

REPORT INFORMATION
  Report Type: Spontaneous
  Country: US (occurrence: US)
  Receive Date: 20250520
  Receipt Date: 20250520
  Transmission Date: 20250717
  Serious: No
  Sender: PFIZER
  Company Number: US-PFIZER INC-202500103180

PATIENT
  Age: 86 Year
  Sex: Female

DRUGS (1)
  1. PAXLOVID [Suspect]
     Active Substance: NIRMATRELVIR\RITONAVIR
     Indication: COVID-19 treatment

REACTIONS (4)
  - Diarrhoea [Unknown]
  - Dysgeusia [Unknown]
  - Therapeutic response unexpected [Unknown]
  - Drug intolerance [Unknown]
